FAERS Safety Report 21630997 (Version 1)
Quarter: 2022Q4

REPORT INFORMATION
  Report Type: Spontaneous
  Country: US (occurrence: None)
  Receive Date: 20221123
  Receipt Date: 20221123
  Transmission Date: 20230113
  Serious: No
  Sender: FDA-Public Use
  Company Number: 2022A362296

PATIENT
  Sex: Male

DRUGS (1)
  1. BYDUREON BCISE [Suspect]
     Active Substance: EXENATIDE
     Dosage: 2.0MG UNKNOWN
     Route: 058

REACTIONS (6)
  - Injection site discharge [Unknown]
  - Rash macular [Unknown]
  - Wrong technique in device usage process [Unknown]
  - Device issue [Unknown]
  - Device malfunction [Unknown]
  - Product use issue [Unknown]
